FAERS Safety Report 5185129-5 (Version None)
Quarter: 2006Q4

REPORT INFORMATION
  Report Type: 
  Country: None (occurrence: None)
  Receive Date: 20061220
  Receipt Date: 20060606
  Transmission Date: 20070319
  Serious: No
  Sender: FDA-Public Use
  Company Number: US-GLAXOSMITHKLINE-A0608045A

PATIENT
  Age: 58 Year
  Sex: Female

DRUGS (3)
  1. NICODERM CQ [Suspect]
     Dates: start: 20060319
  2. NICODERM CQ [Suspect]
     Dates: start: 20060319
  3. NICODERM CQ [Suspect]
     Dates: start: 20060319

REACTIONS (7)
  - DYSGEUSIA [None]
  - HUNGER [None]
  - HYPOAESTHESIA ORAL [None]
  - MALAISE [None]
  - NAUSEA [None]
  - ORAL MUCOSAL BLISTERING [None]
  - VOMITING [None]
